FAERS Safety Report 4497343-2 (Version None)
Quarter: 2004Q4

REPORT INFORMATION
  Report Type: 
  Country: None (occurrence: None)
  Receive Date: 20041110
  Receipt Date: 20041101
  Transmission Date: 20050328
  Serious: Yes (Hospitalization)
  Sender: FDA-Public Use
  Company Number: US-BRISTOL-MYERS SQUIBB COMPANY-12751210

PATIENT
  Sex: Female

DRUGS (6)
  1. MEGACE [Suspect]
     Indication: BREAST CANCER METASTATIC
     Route: 048
  2. LIPITOR [Concomitant]
  3. ASPIRIN [Concomitant]
  4. MS CONTIN [Concomitant]
  5. NORMODYNE [Concomitant]
  6. WARFARIN SODIUM [Concomitant]

REACTIONS (2)
  - ASTHENIA [None]
  - DISORIENTATION [None]
